FAERS Safety Report 20460664 (Version 2)
Quarter: 2022Q1

REPORT INFORMATION
  Report Type: Spontaneous
  Country: JP (occurrence: JP)
  Receive Date: 20220211
  Receipt Date: 20220211
  Transmission Date: 20220423
  Serious: Yes (Hospitalization, Other)
  Sender: FDA-Public Use
  Company Number: JP-PFIZER INC-202200206385

PATIENT
  Age: 75 Year
  Sex: Female

DRUGS (9)
  1. VORICONAZOLE [Suspect]
     Active Substance: VORICONAZOLE
     Indication: Systemic candida
     Dosage: FOR 6 WEEKS
  2. VORICONAZOLE [Suspect]
     Active Substance: VORICONAZOLE
     Indication: Endophthalmitis
     Dosage: FOR 10 WEEKS
  3. VORICONAZOLE [Suspect]
     Active Substance: VORICONAZOLE
     Indication: Candida infection
  4. FLUCONAZOLE [Suspect]
     Active Substance: FLUCONAZOLE
     Indication: Systemic candida
     Dosage: FOR 5 WEEKS
  5. FLUCONAZOLE [Suspect]
     Active Substance: FLUCONAZOLE
     Indication: Endophthalmitis
     Dosage: 100 MG, DAILY
  6. FLUCONAZOLE [Suspect]
     Active Substance: FLUCONAZOLE
     Indication: Candida infection
  7. MICAFUNGIN [Suspect]
     Active Substance: MICAFUNGIN
     Indication: Systemic candida
     Dosage: FOR 3 WEEKS
  8. MICAFUNGIN [Suspect]
     Active Substance: MICAFUNGIN
     Indication: Endophthalmitis
     Dosage: FOR 4 WEEKS
  9. MICAFUNGIN [Suspect]
     Active Substance: MICAFUNGIN
     Indication: Candida infection
     Dosage: FOR 4 WEEKS

REACTIONS (2)
  - Drug ineffective [Unknown]
  - Fungal endocarditis [Recovered/Resolved]
